FAERS Safety Report 7335260-0 (Version None)
Quarter: 2011Q1

REPORT INFORMATION
  Report Type: 
  Country: None (occurrence: None)
  Receive Date: 20110307
  Receipt Date: 20110302
  Transmission Date: 20110831
  Serious: No
  Sender: FDA-Public Use
  Company Number: US-PFIZER INC-2011011054

PATIENT
  Sex: Male
  Weight: 68.934 kg

DRUGS (4)
  1. SERTRALINE HYDROCHLORIDE [Interacting]
     Indication: ANXIETY
  2. FISH OIL [Concomitant]
     Dosage: 1200 MG, 1X/DAY
     Route: 048
  3. VITAMIN B6 [Concomitant]
     Indication: VITAMIN SUPPLEMENTATION
     Dosage: 100 MG, 1X/DAY
     Route: 048
  4. SERTRALINE HYDROCHLORIDE [Suspect]
     Indication: DEPRESSION
     Dosage: 50 MG, 1X/DAY
     Route: 048

REACTIONS (3)
  - FOOD INTERACTION [None]
  - PHARYNGEAL MASS [None]
  - DYSGEUSIA [None]
